FAERS Safety Report 23611048 (Version 1)
Quarter: 2024Q1

REPORT INFORMATION
  Report Type: Spontaneous
  Country: US (occurrence: None)
  Receive Date: 20240308
  Receipt Date: 20240308
  Transmission Date: 20240409
  Serious: Yes (Hospitalization)
  Sender: FDA-Public Use
  Company Number: None

PATIENT
  Age: 72 Year
  Sex: Female
  Weight: 88.5 kg

DRUGS (2)
  1. AZACITIDINE [Suspect]
     Active Substance: AZACITIDINE
     Dates: end: 20230711
  2. VENETOCLAX [Suspect]
     Active Substance: VENETOCLAX
     Dates: end: 20230711

REACTIONS (2)
  - Pyrexia [None]
  - Malaise [None]

NARRATIVE: CASE EVENT DATE: 20230712
